FAERS Safety Report 15282538 (Version 1)
Quarter: 2018Q3

REPORT INFORMATION
  Report Type: Spontaneous
  Country: FR (occurrence: FR)
  Receive Date: 20180816
  Receipt Date: 20180816
  Transmission Date: 20181010
  Serious: Yes (Other)
  Sender: FDA-Public Use
  Company Number: FR-ACCORD-070578

PATIENT
  Sex: Male

DRUGS (2)
  1. PROPECIA [Suspect]
     Active Substance: FINASTERIDE
     Indication: ALOPECIA
     Route: 048
  2. FINASTERIDE. [Suspect]
     Active Substance: FINASTERIDE
     Indication: ALOPECIA
     Route: 048

REACTIONS (6)
  - Mental disorder [Unknown]
  - Genital injury [Unknown]
  - Libido decreased [Unknown]
  - Depression [Unknown]
  - Suicidal ideation [Unknown]
  - Breast cancer [Unknown]
